FAERS Safety Report 13908982 (Version 2)
Quarter: 2017Q4

REPORT INFORMATION
  Report Type: Report from Study
  Country: None (occurrence: US)
  Receive Date: 20170828
  Receipt Date: 20171017
  Transmission Date: 20180320
  Serious: Yes (Other)
  Sender: FDA-Public Use
  Company Number: US-ABBVIE-17K-163-2059158-00

PATIENT
  Age: 59 Year
  Sex: Female
  Weight: 62.65 kg

DRUGS (2)
  1. HUMIRA [Suspect]
     Active Substance: ADALIMUMAB
     Indication: UVEITIS
     Route: 058
     Dates: start: 201609, end: 20170809
  2. HUMIRA [Suspect]
     Active Substance: ADALIMUMAB
     Indication: ACUTE ZONAL OCCULT OUTER RETINOPATHY
     Route: 058
     Dates: start: 201708

REACTIONS (12)
  - Animal bite [Recovering/Resolving]
  - Infection [Recovered/Resolved]
  - Chills [Unknown]
  - Sinusitis [Recovered/Resolved]
  - Fall [Recovered/Resolved]
  - Wound necrosis [Recovered/Resolved]
  - Wound complication [Recovering/Resolving]
  - Arthralgia [Recovering/Resolving]
  - Cellulitis [Recovered/Resolved]
  - Skin discolouration [Recovering/Resolving]
  - Skin abrasion [Recovered/Resolved]
  - Laceration [Recovered/Resolved]

NARRATIVE: CASE EVENT DATE: 201708
